FAERS Safety Report 9783268 (Version 4)
Quarter: 2014Q1

REPORT INFORMATION
  Report Type: Spontaneous
  Country: IT (occurrence: IT)
  Receive Date: 20131226
  Receipt Date: 20140219
  Transmission Date: 20141002
  Serious: Yes (Hospitalization)
  Sender: FDA-Public Use
  Company Number: IT-PFIZER INC-2013366952

PATIENT
  Age: 49 Year
  Sex: Female

DRUGS (4)
  1. CARDURA [Suspect]
     Dosage: 30 MG TOTAL
     Route: 048
     Dates: start: 20131122, end: 20131122
  2. ENAPREN [Suspect]
     Dosage: 280 MG TOTAL
     Route: 048
     Dates: start: 20131122, end: 20131122
  3. DEPAKIN [Concomitant]
     Dosage: UNK
  4. LAMICTAL [Concomitant]
     Dosage: UNK

REACTIONS (2)
  - Drug abuse [Recovered/Resolved]
  - Sopor [Recovered/Resolved]
